FAERS Safety Report 18044511 (Version 1)
Quarter: 2020Q3

REPORT INFORMATION
  Report Type: Spontaneous
  Country: US (occurrence: US)
  Receive Date: 20200720
  Receipt Date: 20200720
  Transmission Date: 20201103
  Serious: Yes (Life-Threatening)
  Sender: FDA-Public Use
  Company Number: None

PATIENT
  Age: 1 Day
  Sex: Female
  Weight: 1.16 kg

DRUGS (5)
  1. DEXTROSE. [Suspect]
     Active Substance: DEXTROSE
     Indication: PRODUCT USED FOR UNKNOWN INDICATION
     Route: 042
  2. CAFFEINE CITRATE. [Concomitant]
     Active Substance: CAFFEINE CITRATE
     Dates: start: 20200717
  3. AZITHROMYCIN ANHYDROUS. [Suspect]
     Active Substance: AZITHROMYCIN ANHYDROUS
     Indication: PNEUMONIA
     Route: 042
  4. GENTAMICIN. [Concomitant]
     Active Substance: GENTAMICIN
     Dates: start: 20200717, end: 20200717
  5. AMPICILLIN [Concomitant]
     Active Substance: AMPICILLIN
     Dates: start: 20200717

REACTIONS (4)
  - Endotracheal intubation complication [None]
  - Cardio-respiratory arrest [None]
  - Arrhythmia [None]
  - Agitation [None]

NARRATIVE: CASE EVENT DATE: 20200718
